FAERS Safety Report 6308979-8 (Version None)
Quarter: 2009Q3

REPORT INFORMATION
  Report Type: 
  Country: None (occurrence: None)
  Receive Date: 20090813
  Receipt Date: 20090803
  Transmission Date: 20100115
  Serious: Yes (Hospitalization)
  Sender: FDA-Public Use
  Company Number: JP-ABBOTT-09P-087-0588967-00

PATIENT
  Sex: Male

DRUGS (11)
  1. KALETRA [Suspect]
     Indication: HIV INFECTION
     Route: 048
     Dates: start: 20080401
  2. EPIVIR [Suspect]
     Indication: HIV INFECTION
     Route: 048
     Dates: start: 20080407
  3. ZERIT [Suspect]
     Indication: HIV INFECTION
     Route: 048
     Dates: start: 20080401, end: 20080611
  4. ZERIT [Suspect]
     Route: 048
     Dates: start: 20080612, end: 20090318
  5. ZERIT [Suspect]
     Route: 048
     Dates: start: 20090319
  6. AMLODIPINE BESILATE [Concomitant]
     Indication: HYPERTENSION
     Route: 048
     Dates: start: 20080401, end: 20090308
  7. OLMESARTAN MEDOXOMIL [Concomitant]
     Indication: HYPERTENSION
     Route: 048
     Dates: start: 20090309
  8. LANSOPRAZOLE [Concomitant]
     Indication: OESOPHAGITIS
     Route: 048
     Dates: start: 20080401
  9. AMINO ACID PREPARATIONS FOR HEPATIC CIRRHOSIS [Concomitant]
     Indication: HEPATIC CIRRHOSIS
     Route: 048
     Dates: start: 20080407
  10. INTERFERON ALFA-2B---GENETICAL RECOMBINATION [Concomitant]
     Indication: HEPATITIS
     Route: 030
     Dates: start: 20080401, end: 20080401
  11. FREEZE-DRIED HUMAN BLOOD-COAGULATION FACTOR [Concomitant]
     Indication: HAEMORRHAGE
     Route: 042
     Dates: start: 20080401

REACTIONS (1)
  - ANAL CANCER [None]
